FAERS Safety Report 21876738 (Version 7)
Quarter: 2023Q2

REPORT INFORMATION
  Report Type: Report from Study
  Country: US (occurrence: US)
  Receive Date: 20230118
  Receipt Date: 20230619
  Transmission Date: 20230722
  Serious: No
  Sender: FDA-Public Use
  Company Number: US-002147023-NVSC2023US006581

PATIENT
  Sex: Male

DRUGS (5)
  1. KESIMPTA [Suspect]
     Active Substance: OFATUMUMAB
     Indication: Product used for unknown indication
     Dosage: THREE TIMES A MONTH LOADING DOSE
     Route: 065
     Dates: start: 20221201
  2. KESIMPTA [Suspect]
     Active Substance: OFATUMUMAB
     Dosage: QMO (TO ONCE A MONTH MAINTENANCE DOSE)
     Route: 065
  3. KESIMPTA [Suspect]
     Active Substance: OFATUMUMAB
     Dosage: 20 MG, QMO
     Route: 058
  4. AMLODIPINE [Concomitant]
     Active Substance: AMLODIPINE BESYLATE
     Indication: Product used for unknown indication
     Dosage: 5 MG
     Route: 065
  5. BACLOFEN [Concomitant]
     Active Substance: BACLOFEN
     Indication: Product used for unknown indication
     Dosage: UNK
     Route: 065

REACTIONS (8)
  - Hypersensitivity [Unknown]
  - Neuralgia [Recovered/Resolved]
  - Insomnia [Not Recovered/Not Resolved]
  - Pain [Unknown]
  - Abdominal pain [Unknown]
  - Neck pain [Unknown]
  - Inappropriate schedule of product administration [Recovered/Resolved]
  - Therapeutic response shortened [Unknown]
